FAERS Safety Report 20173274 (Version 1)
Quarter: 2021Q4

REPORT INFORMATION
  Report Type: Spontaneous
  Country: US (occurrence: US)
  Receive Date: 20211211
  Receipt Date: 20211211
  Transmission Date: 20220303
  Serious: No
  Sender: FDA-Public Use
  Company Number: US-GLAXOSMITHKLINE-USCH2021088040

PATIENT

DRUGS (1)
  1. ABREVA [Suspect]
     Active Substance: DOCOSANOL
     Indication: Product used for unknown indication
     Dosage: UNK

REACTIONS (6)
  - Application site erythema [Unknown]
  - Swelling [Unknown]
  - Pruritus [Unknown]
  - Blister [Unknown]
  - Paraesthesia [Unknown]
  - Pain [Unknown]
